FAERS Safety Report 6110844-6 (Version None)
Quarter: 2009Q1

REPORT INFORMATION
  Report Type: 
  Country: None (occurrence: None)
  Receive Date: 20090309
  Receipt Date: 20090225
  Transmission Date: 20090719
  Serious: Yes (Death)
  Sender: FDA-Public Use
  Company Number: KV200900135

PATIENT
  Age: 54 Year
  Sex: Male

DRUGS (8)
  1. MORPHINE SULFATE [Suspect]
     Indication: BACK PAIN
     Dosage: 100 MG QID ORAL
     Route: 048
     Dates: start: 20081028, end: 20081031
  2. HYDROCODONE (HYDROCODONE) [Concomitant]
  3. OXYMORPHONE (OXYMORPHONE) [Concomitant]
  4. XANAX [Concomitant]
  5. FLOMAX (MORNIFLUMATE) [Concomitant]
  6. DOXYLAMINE SUCCINATE [Concomitant]
  7. UNSPECIFIED SLEEPING PILL [Concomitant]
  8. ANTIHYPERTENSIVES [Concomitant]

REACTIONS (8)
  - ABNORMAL BEHAVIOUR [None]
  - ANALGESIC DRUG LEVEL ABOVE THERAPEUTIC [None]
  - CARDIOMEGALY [None]
  - DRUG TOXICITY [None]
  - DYSARTHRIA [None]
  - FALL [None]
  - LETHARGY [None]
  - SUDDEN DEATH [None]
